FAERS Safety Report 4967496-8 (Version None)
Quarter: 2006Q2

REPORT INFORMATION
  Report Type: 
  Country: None (occurrence: None)
  Receive Date: 20060407
  Receipt Date: 20060407
  Transmission Date: 20061013
  Serious: Yes (Hospitalization)
  Sender: FDA-Public Use
  Company Number: None

PATIENT
  Age: 73 Year
  Sex: Male

DRUGS (12)
  1. GATIFLOXACIN [Suspect]
     Indication: BRONCHITIS
     Dosage: 400MG  IV  QD
     Route: 042
     Dates: start: 20060106, end: 20060112
  2. GATIFLOXACIN [Suspect]
     Indication: PROSTATITIS
     Dosage: 400MG  IV  QD
     Route: 042
     Dates: start: 20060106, end: 20060112
  3. ALBUTEROL [Concomitant]
  4. ASPIRIN [Concomitant]
  5. ATENOLOL [Concomitant]
  6. CLOPIDOGREL BISULFATE [Concomitant]
  7. FOSINOPRIL [Concomitant]
  8. HEPARIN [Concomitant]
  9. HYDROCHLOROTHIAZIDE [Concomitant]
  10. HUMULIN R [Concomitant]
  11. IPRATROPIUM BR [Concomitant]
  12. SODIUM CHLORIDE [Concomitant]

REACTIONS (3)
  - BLOOD CREATININE INCREASED [None]
  - BLOOD GLUCOSE INCREASED [None]
  - DYSURIA [None]
